FAERS Safety Report 7236256-X (Version None)
Quarter: 2011Q1

REPORT INFORMATION
  Report Type: 
  Country: None (occurrence: None)
  Receive Date: 20110120
  Receipt Date: 20110114
  Transmission Date: 20110831
  Serious: Yes (Other)
  Sender: FDA-Public Use
  Company Number: US-MERCK-1101USA01498

PATIENT
  Age: 82 Year
  Sex: Female

DRUGS (1)
  1. FOSAMAX [Suspect]
     Route: 048

REACTIONS (5)
  - OSTEOPOROSIS [None]
  - SYSTEMIC LUPUS ERYTHEMATOSUS [None]
  - RHEUMATOID ARTHRITIS [None]
  - SMALLPOX [None]
  - INFECTIOUS MONONUCLEOSIS [None]
